FAERS Safety Report 15531865 (Version 1)
Quarter: 2018Q4

REPORT INFORMATION
  Report Type: Report from Study
  Country: NL (occurrence: NL)
  Receive Date: 20181019
  Receipt Date: 20181019
  Transmission Date: 20190205
  Serious: Yes (Death, Other)
  Sender: FDA-Public Use
  Company Number: NL-AMGEN-NLDSL2018119122

PATIENT
  Sex: Female

DRUGS (1)
  1. ARANESP [Suspect]
     Active Substance: DARBEPOETIN ALFA
     Indication: NEPHROGENIC ANAEMIA
     Dosage: 80 MCG, QMO
     Route: 058

REACTIONS (4)
  - Swollen tongue [Unknown]
  - Pneumonia [Fatal]
  - Pharyngeal oedema [Unknown]
  - Hypophagia [Unknown]
